FAERS Safety Report 12739948 (Version 1)
Quarter: 2016Q3

REPORT INFORMATION
  Report Type: Spontaneous
  Country: ES (occurrence: ES)
  Receive Date: 20160913
  Receipt Date: 20160913
  Transmission Date: 20161109
  Serious: Yes (Hospitalization)
  Sender: FDA-Public Use
  Company Number: ES-BAYER-2016-174249

PATIENT

DRUGS (1)
  1. STIVARGA [Suspect]
     Active Substance: REGORAFENIB
     Indication: GASTROINTESTINAL STROMAL TUMOUR
     Dosage: UNK
     Dates: start: 20160614, end: 20160628

REACTIONS (8)
  - Keratitis [Unknown]
  - Stomatitis [Unknown]
  - Pruritus generalised [Unknown]
  - Pruritus [Unknown]
  - Rash generalised [Unknown]
  - Toxic skin eruption [Unknown]
  - Aphthous ulcer [Unknown]
  - Headache [Unknown]

NARRATIVE: CASE EVENT DATE: 2016
